FAERS Safety Report 23080448 (Version 3)
Quarter: 2023Q4

REPORT INFORMATION
  Report Type: Report from Study
  Country: US (occurrence: US)
  Receive Date: 20231018
  Receipt Date: 20231126
  Transmission Date: 20240109
  Serious: Yes (Death)
  Sender: FDA-Public Use
  Company Number: US-JNJFOC-20231031162

PATIENT
  Age: 17 Year
  Sex: Female
  Weight: 51.302 kg

DRUGS (10)
  1. SPRAVATO [Suspect]
     Active Substance: ESKETAMINE
     Indication: Depression
     Dosage: ^56 MG, 1 TOTAL DOSE^
     Dates: start: 20230828, end: 20230828
  2. SPRAVATO [Suspect]
     Active Substance: ESKETAMINE
     Indication: Major depression
     Dosage: ^84 MG, 2 TOTAL DOSES^
     Dates: start: 20230831, end: 20230904
  3. SPRAVATO [Suspect]
     Active Substance: ESKETAMINE
     Indication: Suicidal ideation
     Dosage: ^56 MG, 1 TOTAL DOSE^
     Dates: start: 20230907, end: 20230907
  4. SPRAVATO [Suspect]
     Active Substance: ESKETAMINE
     Dosage: ^84 MG, 3 TOTAL DOSES^
     Dates: start: 20230911, end: 20230918
  5. CLONIDINE [Concomitant]
     Active Substance: CLONIDINE
  6. CLONAZEPAM [Concomitant]
     Active Substance: CLONAZEPAM
     Indication: Anxiety
     Route: 065
  7. WELLBUTRIN XL [Concomitant]
     Active Substance: BUPROPION HYDROCHLORIDE
     Indication: Depression
     Route: 065
  8. SERTRALINE [Concomitant]
     Active Substance: SERTRALINE HYDROCHLORIDE
     Indication: Depression
     Dosage: DOSE INCREASED IN RECENT WEEKS.
     Route: 065
  9. LATUDA [Concomitant]
     Active Substance: LURASIDONE HYDROCHLORIDE
     Indication: Depression
     Route: 065
  10. PRAZOSIN [Concomitant]
     Active Substance: PRAZOSIN
     Indication: Nightmare
     Dosage: QHS
     Route: 065

REACTIONS (2)
  - Completed suicide [Fatal]
  - Off label use [Unknown]

NARRATIVE: CASE EVENT DATE: 20230801
